FAERS Safety Report 17308665 (Version 1)
Quarter: 2020Q1

REPORT INFORMATION
  Report Type: Spontaneous
  Country: US (occurrence: US)
  Receive Date: 20200123
  Receipt Date: 20200123
  Transmission Date: 20200409
  Serious: No
  Sender: FDA-Public Use
  Company Number: US-TOLMAR, INC.-20US019833

PATIENT
  Age: 50 Year
  Sex: Female

DRUGS (2)
  1. TAMOXIFEN [Concomitant]
     Active Substance: TAMOXIFEN
     Indication: BREAST CANCER
  2. ATRIDOX [Suspect]
     Active Substance: DOXYCYCLINE HYCLATE
     Indication: THERAPEUTIC PROCEDURE
     Dosage: 50 MG
     Route: 065
     Dates: start: 20191101, end: 20191101

REACTIONS (3)
  - Gingival discomfort [Recovered/Resolved]
  - Product physical consistency issue [Recovered/Resolved]
  - Gingival erythema [Recovered/Resolved]

NARRATIVE: CASE EVENT DATE: 20191122
